FAERS Safety Report 6982961-X (Version None)
Quarter: 2010Q3

REPORT INFORMATION
  Report Type: 
  Country: None (occurrence: None)
  Receive Date: 20100914
  Receipt Date: 20100513
  Transmission Date: 20110219
  Serious: No
  Sender: FDA-Public Use
  Company Number: US-PFIZER INC-2010060747

PATIENT
  Sex: Female

DRUGS (3)
  1. LYRICA [Suspect]
     Indication: PAIN IN EXTREMITY
     Dosage: 75 MG, 2X/DAY
     Route: 048
     Dates: start: 20080601, end: 20090801
  2. SIMVASTATIN [Concomitant]
  3. LORATADINE [Concomitant]
     Dosage: UNK

REACTIONS (4)
  - EATING DISORDER [None]
  - GINGIVAL PAIN [None]
  - TONGUE DISORDER [None]
  - TONGUE HAEMORRHAGE [None]
